FAERS Safety Report 9475269 (Version 1)
Quarter: 2013Q3

REPORT INFORMATION
  Report Type: Spontaneous
  Country: GB (occurrence: None)
  Receive Date: 20130820
  Receipt Date: 20130820
  Transmission Date: 20140515
  Serious: Yes (Life-Threatening, Hospitalization, Disabling, Other)
  Sender: FDA-Public Use
  Company Number: AUR-APL-2013-06739

PATIENT
  Age: 66 Year
  Sex: Female
  Weight: 52 kg

DRUGS (8)
  1. GABAPENTIN [Suspect]
     Indication: FIBROMYALGIA
     Dosage: 100 MG 3 IN 1 D
     Route: 048
     Dates: start: 20120901
  2. STRONTIUM RANELATE [Suspect]
     Indication: FIBROMYALGIA
     Dosage: 1 D
     Route: 048
     Dates: start: 20120901, end: 20130730
  3. STRONTIUM RANELATE [Suspect]
     Indication: OSTEOARTHRITIS
     Dosage: 1 D
     Route: 048
     Dates: start: 20120901, end: 20130730
  4. STRONTIUM RANELATE [Suspect]
     Indication: OSTEOPOROSIS
     Dosage: 1 D
     Route: 048
     Dates: start: 20120901, end: 20130730
  5. AMITRIPTYLINE (AMITRIPTYLINE) [Concomitant]
  6. CALCICHEW D3 (LEKOVIT CA) [Concomitant]
  7. OMEPRAZOLE (OMEPRAZOLE) [Concomitant]
  8. TRAMADOL (TRAMADOL) [Concomitant]

REACTIONS (6)
  - Purpura [None]
  - Vasculitic rash [None]
  - Malaise [None]
  - Zygomycosis [None]
  - Venous thrombosis [None]
  - Autoimmune disorder [None]
